FAERS Safety Report 19265150 (Version 1)
Quarter: 2021Q2

REPORT INFORMATION
  Report Type: Spontaneous
  Country: GB (occurrence: GB)
  Receive Date: 20210517
  Receipt Date: 20210517
  Transmission Date: 20210717
  Serious: Yes (Other)
  Sender: FDA-Public Use
  Company Number: GB-MYLANLABS-2021M1028093

PATIENT
  Age: 80 Year
  Sex: Female
  Weight: 77 kg

DRUGS (10)
  1. FUROSEMIDE. [Concomitant]
     Active Substance: FUROSEMIDE
     Dosage: AS A WATER TABLET FOR 2 WEEKS AND STOP
     Dates: start: 20210413
  2. SERTRALINE [Concomitant]
     Active Substance: SERTRALINE HYDROCHLORIDE
     Dosage: 1 DOSAGE FORM, QD (IN THE MORNING)
     Dates: start: 20200910
  3. ROPINIROLE. [Concomitant]
     Active Substance: ROPINIROLE
     Dosage: 250 MICROGRAM, QD (FOR 2 DAYS.)
     Dates: start: 20210427
  4. TRAMADOL. [Concomitant]
     Active Substance: TRAMADOL
     Indication: PAIN
     Dosage: 1 DOSAGE FORM, TID (WHEN REQUIRED)
     Dates: start: 20200910
  5. SALBUTAMOL [Concomitant]
     Active Substance: ALBUTEROL
     Dosage: 2 DOSAGE FORM, PRN (TO HELP WITH BREATHING)
     Dates: start: 20200910, end: 20210507
  6. ROPINIROLE. [Suspect]
     Active Substance: ROPINIROLE
     Indication: PRODUCT USED FOR UNKNOWN INDICATION
     Dosage: 250 MICROGRAM
     Dates: start: 20210507
  7. QVAR [Concomitant]
     Active Substance: BECLOMETHASONE DIPROPIONATE
     Dosage: 2 DOSAGE FORM, BID
     Route: 055
     Dates: start: 20200910
  8. PARACETAMOL [Concomitant]
     Active Substance: ACETAMINOPHEN
     Indication: PAIN
     Dosage: TAKE 1 OR 2, UP TO 4 TIMES A DAY
     Dates: start: 20200910
  9. QUININE [Concomitant]
     Active Substance: QUININE
     Dosage: 1 DOSAGE FORM, PM (AT NIGHT)
     Dates: start: 20210222, end: 20210322
  10. TIMODINE                           /01524101/ [Concomitant]
     Dosage: 1 DOSAGE FORM, BID (APPLY TWICE A DAY )
     Dates: start: 20210401, end: 20210411

REACTIONS (1)
  - Swelling of eyelid [Recovered/Resolved]

NARRATIVE: CASE EVENT DATE: 20210507
